FAERS Safety Report 7722279-0 (Version None)
Quarter: 2011Q3

REPORT INFORMATION
  Report Type: 
  Country: None (occurrence: None)
  Receive Date: 20110831
  Receipt Date: 20110824
  Transmission Date: 20111222
  Serious: Yes (Hospitalization, Other)
  Sender: FDA-Public Use
  Company Number: US-ELI_LILLY_AND_COMPANY-US200904004206

PATIENT
  Sex: Male
  Weight: 117.1 kg

DRUGS (19)
  1. ACARBOSE [Concomitant]
     Indication: TYPE 2 DIABETES MELLITUS
     Dosage: 50 UG, 3/D
     Route: 048
  2. TERAZOSIN HCL [Concomitant]
     Indication: BLOOD PRESSURE
     Dosage: 5 MG, UNK
     Route: 048
  3. BYETTA [Suspect]
     Dosage: 10 UG, DAILY (1/D)
     Route: 058
     Dates: start: 20060101
  4. LIPITOR [Concomitant]
     Indication: BLOOD CHOLESTEROL
  5. LISINOPRIL [Concomitant]
     Indication: PROPHYLAXIS
     Dosage: 40 MG, DAILY (1/D)
     Route: 048
  6. BYETTA [Suspect]
     Dosage: 10 UG, BID
     Route: 058
  7. LANTUS [Concomitant]
     Indication: TYPE 2 DIABETES MELLITUS
     Dosage: 12 U, EACH EVENING
  8. CARVEDILOL [Concomitant]
     Indication: CARDIAC DISORDER
     Dosage: 6.25 MG, 2/D
     Route: 048
  9. FUROSEMIDE [Concomitant]
     Dosage: 120 MG, UNK
     Route: 048
     Dates: end: 20110701
  10. GLIPIZIDE [Concomitant]
     Indication: TYPE 2 DIABETES MELLITUS
     Dosage: 10 MG, 3/D
     Route: 048
     Dates: start: 19920101
  11. LANTUS [Concomitant]
     Dosage: 12 U, EACH EVENING
     Route: 058
  12. FUROSEMIDE [Concomitant]
     Dosage: UNK UNK, QD
  13. SOTALOL HCL [Concomitant]
     Indication: ARRHYTHMIA
     Dosage: 80 MG, 2/D
     Route: 048
  14. ASPIRIN [Concomitant]
     Dosage: 81 MG, UNK
     Route: 048
  15. BYETTA [Suspect]
     Dosage: 10 UG, DAILY (1/D)
     Route: 058
     Dates: start: 20060101
  16. FUROSEMIDE [Concomitant]
     Dosage: 20 MG, QD
  17. BYETTA [Suspect]
     Indication: TYPE 2 DIABETES MELLITUS
     Dosage: 5 UG, 2/D
     Route: 058
     Dates: start: 20050101, end: 20060101
  18. FUROSEMIDE [Concomitant]
     Indication: RENAL DISORDER
     Dosage: 120 MG, UNK
  19. SIMVASTATIN [Concomitant]
     Indication: BLOOD CHOLESTEROL
     Dosage: 20 MG, DAILY (1/D)
     Route: 048

REACTIONS (24)
  - BLOOD GLUCOSE DECREASED [None]
  - BLADDER CANCER [None]
  - VASCULAR GRAFT [None]
  - WOUND INFECTION STAPHYLOCOCCAL [None]
  - DECREASED APPETITE [None]
  - ARTHRITIS [None]
  - JOINT INJURY [None]
  - INTENTIONAL DRUG MISUSE [None]
  - SKELETAL INJURY [None]
  - TENDON INJURY [None]
  - HYPERHIDROSIS [None]
  - BACK PAIN [None]
  - CORONARY ARTERY OCCLUSION [None]
  - LACERATION [None]
  - OEDEMA PERIPHERAL [None]
  - MEDICATION ERROR [None]
  - OFF LABEL USE [None]
  - GLYCOSYLATED HAEMOGLOBIN INCREASED [None]
  - PAIN IN EXTREMITY [None]
  - WEIGHT DECREASED [None]
  - DRUG INEFFECTIVE [None]
  - ARTHRALGIA [None]
  - BLOOD GLUCOSE INCREASED [None]
  - DIZZINESS [None]
